FAERS Safety Report 8284945 (Version 4)
Quarter: 2013Q4

REPORT INFORMATION
  Report Type: Report from Study
  Country: MX (occurrence: MX)
  Receive Date: 20111212
  Receipt Date: 20131216
  Transmission Date: 20140711
  Serious: Yes (Hospitalization, Other)
  Sender: FDA-Public Use
  Company Number: PHHY2011MX106208

PATIENT
  Age: 76 Year
  Sex: Female

DRUGS (15)
  1. RASILEZ [Suspect]
     Dosage: 300 MG, UNK
  2. DIOVAN [Suspect]
     Indication: HYPERTENSION
     Dosage: 2 DF (160 MG), DAILY
     Route: 048
  3. DIOVAN [Suspect]
     Dosage: 2 DF, PER DAY
     Route: 048
  4. DIOVAN [Suspect]
     Dosage: 2.5 DF (160MG), PER DAY
     Route: 048
  5. DIOVAN [Suspect]
     Dosage: 2 DF (320 MG), UKN
     Route: 048
     Dates: start: 20130919
  6. GALVUS MET [Suspect]
     Dosage: 1 DF (1000/50 MG), DAILY
     Dates: start: 2011, end: 2012
  7. METFORMIN [Concomitant]
     Indication: DIABETES MELLITUS
     Dosage: 1500 MG, PER DAY
  8. METFORMIN [Concomitant]
     Dosage: 3 DF (850MG), DAILY
     Dates: start: 201110
  9. JANUVIA [Concomitant]
     Indication: DIABETES MELLITUS
     Dosage: 1 UKN, PER DAY
     Dates: start: 201106
  10. JANUVIA [Concomitant]
     Dosage: 1 DF (100MG), UNK
     Dates: start: 201110
  11. LANTUS [Concomitant]
     Indication: DIABETES MELLITUS
     Dosage: 25 MG, PER DAY
     Dates: start: 201106
  12. NIDESEF [Concomitant]
     Indication: NEUROPATHY PERIPHERAL
     Dosage: 1 UKN, DAILY
  13. PANKREOFLAT [Concomitant]
     Indication: GASTRIC DISORDER
     Dosage: 3 UKN, DAILY
     Dates: start: 191311
  14. MINIPRESS [Concomitant]
     Indication: BLOOD PRESSURE ABNORMAL
     Dosage: 3 UKN, DAILY
  15. PRANDIN [Concomitant]
     Indication: GASTRITIS
     Dosage: 3 UKN, DAILY

REACTIONS (13)
  - Influenza [Not Recovered/Not Resolved]
  - Blood pressure inadequately controlled [Not Recovered/Not Resolved]
  - Headache [Not Recovered/Not Resolved]
  - Pneumonia [Recovered/Resolved]
  - Blood glucose increased [Unknown]
  - Wrong technique in drug usage process [Unknown]
  - Abdominal pain upper [Unknown]
  - Lung infection [Unknown]
  - Cough [Unknown]
  - Wheezing [Unknown]
  - Skin burning sensation [Unknown]
  - Lung disorder [Unknown]
  - Pain [Unknown]
